FAERS Safety Report 8048210-9 (Version None)
Quarter: 2012Q1

REPORT INFORMATION
  Report Type: 
  Country: None (occurrence: None)
  Receive Date: 20120110
  Receipt Date: 20111223
  Transmission Date: 20120608
  Serious: Yes (Other)
  Sender: FDA-Public Use
  Company Number: A0959107A

PATIENT
  Age: 65 Year
  Sex: Male

DRUGS (1)
  1. SODIUM FLUORIDE TOOTHPASTE TUBE (SODIUM FLUORIDE) [Suspect]
     Indication: DENTAL CLEANING
     Dosage: DENTAL

REACTIONS (4)
  - GLOSSODYNIA [None]
  - SPEECH DISORDER [None]
  - GLOSSITIS [None]
  - TONGUE PARALYSIS [None]
